FAERS Safety Report 25211830 (Version 1)
Quarter: 2025Q2

REPORT INFORMATION
  Report Type: Spontaneous
  Country: NL (occurrence: NL)
  Receive Date: 20250418
  Receipt Date: 20250418
  Transmission Date: 20250717
  Serious: Yes (Death, Hospitalization, Other)
  Sender: RANBAXY
  Company Number: NL-SUN PHARMACEUTICAL INDUSTRIES LTD-2025R1-503862

PATIENT
  Age: 23 Year
  Sex: Male

DRUGS (4)
  1. OXYCODONE [Suspect]
     Active Substance: OXYCODONE
     Indication: Leukoencephalopathy
     Route: 065
  2. OXYCODONE [Suspect]
     Active Substance: OXYCODONE
     Route: 058
  3. QUETIAPINE [Suspect]
     Active Substance: QUETIAPINE
     Indication: Leukoencephalopathy
     Route: 065
  4. 3-METHYLMETHCATHINONE [Suspect]
     Active Substance: 3-METHYLMETHCATHINONE
     Indication: Leukoencephalopathy
     Route: 065

REACTIONS (11)
  - Substance abuse [Fatal]
  - Coma [Fatal]
  - Depressed level of consciousness [Fatal]
  - Dyspnoea [Fatal]
  - Shock [Fatal]
  - Acute kidney injury [Fatal]
  - Hyperkalaemia [Fatal]
  - Hypertransaminasaemia [Fatal]
  - Rhabdomyolysis [Fatal]
  - Hyperlactacidaemia [Fatal]
  - Overdose [Fatal]
